FAERS Safety Report 5600213-7 (Version None)
Quarter: 2008Q1

REPORT INFORMATION
  Report Type: 
  Country: None (occurrence: None)
  Receive Date: 20080123
  Receipt Date: 20080118
  Transmission Date: 20080703
  Serious: Yes (Hospitalization)
  Sender: FDA-Public Use
  Company Number: US-GENENTECH-250945

PATIENT
  Sex: Female
  Weight: 76.644 kg

DRUGS (2)
  1. BEVACIZUMAB [Suspect]
     Indication: BREAST CANCER METASTATIC
     Dosage: 1550 MG, Q3W
     Route: 042
     Dates: start: 20070115
  2. ABRAXANE [Suspect]
     Indication: NON-SMALL CELL LUNG CANCER
     Dosage: 375 MG, UNK
     Dates: start: 20070115

REACTIONS (12)
  - BACTERIAL INFECTION [None]
  - BLOOD CULTURE POSITIVE [None]
  - HYPOXIA [None]
  - MENTAL STATUS CHANGES [None]
  - OESOPHAGEAL ULCER [None]
  - OESOPHAGITIS [None]
  - OXYGEN SATURATION DECREASED [None]
  - PNEUMONIA [None]
  - RADIATION INJURY [None]
  - TRACHEAL OBSTRUCTION [None]
  - TRACHEITIS [None]
  - TRACHEOMALACIA [None]
